FAERS Safety Report 5519211-7 (Version None)
Quarter: 2007Q4

REPORT INFORMATION
  Report Type: 
  Country: None (occurrence: None)
  Receive Date: 20071114
  Receipt Date: 20071114
  Transmission Date: 20080405
  Serious: Yes (Death)
  Sender: FDA-Public Use
  Company Number: None

PATIENT
  Sex: Male
  Weight: 44 kg

DRUGS (3)
  1. CLOFARABINE [Suspect]
     Indication: ACUTE MYELOID LEUKAEMIA
     Dosage: 60MG DAILY TIMES 5 IV
     Route: 042
     Dates: start: 20071025, end: 20071029
  2. MELPHALAN [Suspect]
     Dosage: 180MG TIMES ONE IV
     Route: 042
     Dates: start: 20071030, end: 20071030
  3. CAMPATH [Concomitant]

REACTIONS (9)
  - ACIDOSIS [None]
  - BLOOD CULTURE POSITIVE [None]
  - BRADYCARDIA [None]
  - CARDIAC ARREST [None]
  - PSEUDOMONAS INFECTION [None]
  - RENAL IMPAIRMENT [None]
  - SEPSIS [None]
  - SPUTUM CULTURE POSITIVE [None]
  - STENOTROPHOMONAS INFECTION [None]
